FAERS Safety Report 5939688-2 (Version None)
Quarter: 2008Q4

REPORT INFORMATION
  Report Type: 
  Country: None (occurrence: None)
  Receive Date: 20081030
  Receipt Date: 20081030
  Transmission Date: 20090506
  Serious: Yes (Disabling)
  Sender: FDA-Public Use
  Company Number: None

PATIENT
  Age: 53 Year
  Sex: Female
  Weight: 58.9676 kg

DRUGS (3)
  1. LAMICTAL [Suspect]
     Indication: ANXIETY DISORDER
     Dosage: 25MG 5 DAYS PO 30  3 DAYS  PO
     Route: 048
     Dates: start: 20081001, end: 20081015
  2. LAMICTAL [Suspect]
     Indication: ANXIETY DISORDER
     Dosage: 25MG 5 DAYS PO 30  3 DAYS  PO
     Route: 048
  3. . [Concomitant]

REACTIONS (4)
  - HEPATIC FUNCTION ABNORMAL [None]
  - LYMPHADENOPATHY [None]
  - PYREXIA [None]
  - RASH [None]
